FAERS Safety Report 4719180-3 (Version None)
Quarter: 2005Q3

REPORT INFORMATION
  Report Type: 
  Country: None (occurrence: None)
  Receive Date: 20050720
  Receipt Date: 20050701
  Transmission Date: 20060218
  Serious: Yes (Life-Threatening, Other)
  Sender: FDA-Public Use
  Company Number: US_0507119755

PATIENT
  Age: 44 Year
  Sex: Female

DRUGS (1)
  1. CEFACLOR [Suspect]
     Indication: NASOPHARYNGITIS
     Dates: start: 20050321, end: 20050321

REACTIONS (1)
  - SHOCK [None]
